FAERS Safety Report 24668761 (Version 1)
Quarter: 2024Q4

REPORT INFORMATION
  Report Type: Spontaneous
  Country: CN (occurrence: CN)
  Receive Date: 20241127
  Receipt Date: 20241127
  Transmission Date: 20250114
  Serious: Yes (Death)
  Sender: RANBAXY
  Company Number: CN-SUN PHARMACEUTICAL INDUSTRIES LTD-2024R1-479903

PATIENT
  Age: 57 Year
  Sex: Male

DRUGS (5)
  1. CAPECITABINE [Suspect]
     Active Substance: CAPECITABINE
     Indication: Neuroendocrine carcinoma
     Dosage: 1 GRAM, BID,  ON DAYS 1?14 EVERY 3 WEEKS
     Route: 048
  2. IRINOTECAN [Suspect]
     Active Substance: IRINOTECAN
     Indication: Neuroendocrine carcinoma
     Dosage: 200 MILLIGRAM
     Route: 041
  3. SUNITINIB [Suspect]
     Active Substance: SUNITINIB
     Indication: Neuroendocrine carcinoma
     Dosage: 37.5 MILLIGRAM, DAILY
     Route: 048
  4. TEMOZOLOMIDE [Suspect]
     Active Substance: TEMOZOLOMIDE
     Indication: Neuroendocrine carcinoma
     Dosage: 200 MILLIGRAM,  DAYS 1?14 EVERY 3 WEEKS
     Route: 048
  5. MITOTANE [Suspect]
     Active Substance: MITOTANE
     Indication: Neuroendocrine carcinoma
     Dosage: 2000 MILLIGRAM, DAILY
     Route: 048

REACTIONS (1)
  - Neoplasm progression [Fatal]
